FAERS Safety Report 6435116-1 (Version None)
Quarter: 2009Q4

REPORT INFORMATION
  Report Type: 
  Country: None (occurrence: None)
  Receive Date: 20091110
  Receipt Date: 20091028
  Transmission Date: 20100525
  Serious: Yes (Other)
  Sender: FDA-Public Use
  Company Number: CH-B.I. PHARMACEUTICALS,INC./RIDGEFIELD-2009-SI-00047SI

PATIENT
  Age: 37 Year
  Sex: Female

DRUGS (16)
  1. SIFROL [Suspect]
     Indication: EXTRAPYRAMIDAL DISORDER
     Dosage: 0.125 MG
     Route: 048
  2. LAXOBERON [Suspect]
     Indication: CONSTIPATION
     Route: 048
  3. DEPAKENE [Suspect]
     Indication: BIPOLAR DISORDER
     Route: 048
  4. FLUOXETINE HCL [Suspect]
     Indication: BIPOLAR DISORDER
  5. SEROQUEL [Suspect]
     Dosage: 100 MG
     Route: 048
     Dates: start: 20060101
  6. RIVOTRIL [Suspect]
     Indication: ANXIETY DISORDER
  7. DAFALGAN [Suspect]
     Indication: PAIN
  8. ACETYLSALICYLIC ACID [Suspect]
     Indication: PAIN
  9. MEFENAMIC ACID [Suspect]
     Indication: PAIN
  10. ALLI [Suspect]
     Indication: WEIGHT CONTROL
     Dosage: 180 MG
     Route: 048
  11. ONOTON [Suspect]
  12. LEVONORGESTREL [Suspect]
     Indication: POST COITAL CONTRACEPTION
     Dosage: 0.75 MG
     Route: 048
     Dates: start: 20090629, end: 20090630
  13. AMOXICILLIN [Suspect]
     Indication: DENTAL CARE
     Dates: start: 20090805, end: 20090810
  14. EXCEDRIN (MIGRAINE) [Suspect]
  15. IRON [Concomitant]
     Indication: ANAEMIA
     Dates: start: 20090722, end: 20090722
  16. SUPRADYN [Concomitant]
     Route: 048

REACTIONS (1)
  - ABORTION INDUCED [None]
